FAERS Safety Report 11186821 (Version 1)
Quarter: 2015Q2

REPORT INFORMATION
  Report Type: Spontaneous
  Country: US (occurrence: US)
  Receive Date: 20150614
  Receipt Date: 20150614
  Transmission Date: 20150821
  Serious: Yes (Other)
  Sender: FDA-Public Use
  Company Number: US-B.I. PHARMACEUTICALS,INC./RIDGEFIELD-2015-BI-30512BP

PATIENT
  Age: 80 Year
  Sex: Female
  Weight: 59 kg

DRUGS (2)
  1. GILOTRIF [Suspect]
     Active Substance: AFATINIB
     Indication: LUNG CANCER METASTATIC
     Dosage: 40 MG
     Route: 048
     Dates: start: 20150518, end: 20150530
  2. GILOTRIF [Suspect]
     Active Substance: AFATINIB
     Dosage: 40 MG
     Route: 048
     Dates: start: 20150601

REACTIONS (8)
  - Metastases to lung [Not Recovered/Not Resolved]
  - Diarrhoea [Recovered/Resolved]
  - Vomiting [Recovered/Resolved]
  - Glomerular filtration rate decreased [Unknown]
  - Syncope [Recovered/Resolved]
  - Pulmonary oedema [Not Recovered/Not Resolved]
  - Asthenia [Not Recovered/Not Resolved]
  - Dehydration [Unknown]

NARRATIVE: CASE EVENT DATE: 201505
